FAERS Safety Report 7157252-7 (Version None)
Quarter: 2010Q4

REPORT INFORMATION
  Report Type: 
  Country: None (occurrence: None)
  Receive Date: 20101214
  Receipt Date: 20101203
  Transmission Date: 20110411
  Serious: Yes (Other)
  Sender: FDA-Public Use
  Company Number: GXKR2010IT13777

PATIENT
  Sex: Female

DRUGS (1)
  1. ATENOLOL [Suspect]
     Route: 065

REACTIONS (3)
  - OESOPHAGITIS [None]
  - PARAESTHESIA [None]
  - SUFFOCATION FEELING [None]
